FAERS Safety Report 9967456 (Version 2)
Quarter: 2014Q2

REPORT INFORMATION
  Report Type: Spontaneous
  Country: AT (occurrence: AT)
  Receive Date: 20140305
  Receipt Date: 20140410
  Transmission Date: 20141212
  Serious: Yes (Other)
  Sender: FDA-Public Use
  Company Number: AT-AMGEN GMBH-AUTSP2014014773

PATIENT
  Sex: Male

DRUGS (2)
  1. XGEVA [Suspect]
     Indication: METASTASES TO BONE
     Dosage: UNK UNK, QMO
     Route: 065
     Dates: start: 2012
  2. XGEVA [Suspect]
     Indication: PROSTATE CANCER METASTATIC

REACTIONS (1)
  - Osteonecrosis of jaw [Unknown]
